FAERS Safety Report 7949533-1 (Version None)
Quarter: 2011Q4

REPORT INFORMATION
  Report Type: 
  Country: None (occurrence: None)
  Receive Date: 20111130
  Receipt Date: 20111121
  Transmission Date: 20120403
  Serious: Yes (Hospitalization, Other)
  Sender: FDA-Public Use
  Company Number: US-BAYER-2011-045324

PATIENT
  Age: 38 Year
  Sex: Female
  Weight: 68 kg

DRUGS (8)
  1. YASMIN [Suspect]
     Indication: ACNE
     Dosage: UNK
     Route: 048
     Dates: start: 20061104, end: 20070401
  2. WELLBUTRIN [Concomitant]
     Indication: FATIGUE
  3. MIRENA [Concomitant]
     Dosage: UNK
     Route: 015
     Dates: start: 20050101, end: 20100101
  4. FLONASE [Concomitant]
     Indication: MULTIPLE ALLERGIES
     Dosage: UNK
     Dates: start: 20100101
  5. WARFARIN SODIUM [Concomitant]
     Dosage: UNK
     Dates: start: 20070101
  6. ALLEGRA [Concomitant]
     Indication: MULTIPLE ALLERGIES
     Dosage: UNK
     Dates: start: 20090101, end: 20100101
  7. WELLBUTRIN [Concomitant]
     Indication: DEPRESSION
     Dosage: UNK
     Dates: start: 20030101, end: 20080101
  8. WARFARIN SODIUM [Concomitant]
     Indication: THROMBOSIS PROPHYLAXIS
     Dosage: UNK UNK, PRN
     Dates: start: 19920101

REACTIONS (9)
  - DYSPNOEA [None]
  - FEAR [None]
  - PAIN IN EXTREMITY [None]
  - INJURY [None]
  - CHEST PAIN [None]
  - PULMONARY EMBOLISM [None]
  - DEEP VEIN THROMBOSIS [None]
  - ANXIETY [None]
  - ANHEDONIA [None]
